FAERS Safety Report 7229457-8 (Version None)
Quarter: 2011Q1

REPORT INFORMATION
  Report Type: 
  Country: None (occurrence: None)
  Receive Date: 20110117
  Receipt Date: 20110113
  Transmission Date: 20110831
  Serious: Yes (Death)
  Sender: FDA-Public Use
  Company Number: Z0005417B

PATIENT
  Sex: Female
  Weight: 57.6 kg

DRUGS (8)
  1. ALPRAZOLAM [Concomitant]
  2. GLIMEPIRIDE [Concomitant]
  3. TRAZODONE [Concomitant]
  4. PAZOPANIB [Suspect]
     Dosage: 800MG PER DAY
     Route: 048
     Dates: start: 20091119, end: 20101117
  5. FUROSEMIDE [Concomitant]
  6. LORAZEPAM [Concomitant]
  7. LOSARTAN [Concomitant]
  8. BISACODYL [Concomitant]

REACTIONS (1)
  - PNEUMONIA [None]
